FAERS Safety Report 7705247-4 (Version None)
Quarter: 2011Q3

REPORT INFORMATION
  Report Type: 
  Country: None (occurrence: None)
  Receive Date: 20110822
  Receipt Date: 20110822
  Transmission Date: 20111222
  Serious: Yes (Hospitalization, Other)
  Sender: FDA-Public Use
  Company Number: None

PATIENT
  Age: 80 Year
  Sex: Male
  Weight: 115.5 kg

DRUGS (1)
  1. NORTRIPTYLINE HCL [Suspect]
     Indication: PAIN
     Dosage: 50 MG EVERY DAY PO
     Route: 048
     Dates: start: 20101115, end: 20110805

REACTIONS (3)
  - NEURALGIA [None]
  - CONVULSION [None]
  - CONDITION AGGRAVATED [None]
